FAERS Safety Report 20054873 (Version 3)
Quarter: 2021Q4

REPORT INFORMATION
  Report Type: Spontaneous
  Country: IT (occurrence: IT)
  Receive Date: 20211110
  Receipt Date: 20211220
  Transmission Date: 20220303
  Serious: Yes (Other)
  Sender: FDA-Public Use
  Company Number: IT-ASTELLAS-2021US041893

PATIENT
  Age: 51 Year
  Sex: Male

DRUGS (9)
  1. GILTERITINIB [Suspect]
     Active Substance: GILTERITINIB
     Indication: Minimal residual disease
     Dosage: UNK, UNK, UNKNOWN FREQ.
     Route: 048
     Dates: start: 20190320, end: 20190620
  2. GILTERITINIB [Suspect]
     Active Substance: GILTERITINIB
     Indication: Stem cell transplant
     Dosage: 120 MG TO 80 MG ONCE DAILY
     Route: 048
     Dates: start: 20200116, end: 20200131
  3. GILTERITINIB [Suspect]
     Active Substance: GILTERITINIB
     Route: 048
     Dates: start: 20200824
  4. FOLIC ACID [Concomitant]
     Active Substance: FOLIC ACID
     Indication: Product used for unknown indication
     Dosage: 5 MG, ONCE DAILY (FOR 1 MONTH-DECEMBER)
     Route: 065
  5. ALLOPURINOL [Concomitant]
     Active Substance: ALLOPURINOL
     Indication: Product used for unknown indication
     Dosage: 300 MG, ONCE DAILY (1 CP DAILY)
     Route: 065
     Dates: start: 202006
  6. OMEGA 3 [Concomitant]
     Active Substance: CAPSAICIN
     Indication: Product used for unknown indication
     Route: 065
     Dates: start: 202003
  7. VITAMIN D3 [Concomitant]
     Active Substance: CHOLECALCIFEROL
     Indication: Supplementation therapy
     Dosage: 25 IU, TWICE/MONTH (STARTING FROM POST HSCT)
     Route: 065
  8. BISOPROLOL [Concomitant]
     Active Substance: BISOPROLOL
     Indication: Product used for unknown indication
     Route: 065
     Dates: start: 201909
  9. PANTOPRAZOLE [Concomitant]
     Active Substance: PANTOPRAZOLE
     Indication: Product used for unknown indication
     Dosage: 40 MG, ONCE DAILY (STARTING FROM HSCT)
     Route: 065

REACTIONS (4)
  - Cytopenia [Recovered/Resolved with Sequelae]
  - Graft versus host disease [Recovered/Resolved]
  - Posterior reversible encephalopathy syndrome [Recovered/Resolved]
  - Varicella zoster virus infection [Recovered/Resolved]

NARRATIVE: CASE EVENT DATE: 20190701
